FAERS Safety Report 23124337 (Version 1)
Quarter: 2023Q4

REPORT INFORMATION
  Report Type: Spontaneous
  Country: US (occurrence: US)
  Receive Date: 20231030
  Receipt Date: 20231030
  Transmission Date: 20240110
  Serious: Yes (Other)
  Sender: FDA-Public Use
  Company Number: US-GLAXOSMITHKLINE-US2023GSK146510

PATIENT

DRUGS (1)
  1. LAMOTRIGINE [Suspect]
     Active Substance: LAMOTRIGINE
     Indication: Product used for unknown indication
     Dosage: UNK

REACTIONS (5)
  - Stevens-Johnson syndrome [Recovering/Resolving]
  - Ocular surface disease [Recovered/Resolved]
  - Dry eye [Unknown]
  - Neovascularisation [Recovered/Resolved]
  - Eye inflammation [Recovered/Resolved]
